FAERS Safety Report 21819031 (Version 1)
Quarter: 2023Q1

REPORT INFORMATION
  Report Type: Spontaneous
  Country: ES (occurrence: ES)
  Receive Date: 20230104
  Receipt Date: 20230104
  Transmission Date: 20230417
  Serious: Yes (Hospitalization)
  Sender: FDA-Public Use
  Company Number: None

PATIENT
  Age: 53 Year
  Sex: Male

DRUGS (3)
  1. PACLITAXEL [Suspect]
     Active Substance: PACLITAXEL
     Indication: Antiphospholipid syndrome
     Route: 065
     Dates: start: 202005, end: 202005
  2. SINTROM [Suspect]
     Active Substance: ACENOCOUMAROL
     Indication: Systemic lupus erythematosus
     Route: 065
     Dates: start: 202005, end: 20200528
  3. HEPARIN [Suspect]
     Active Substance: HEPARIN SODIUM
     Indication: Prophylaxis
     Route: 065
     Dates: start: 202005, end: 202005

REACTIONS (2)
  - Compartment syndrome [Recovered/Resolved]
  - Haematoma [Recovered/Resolved]

NARRATIVE: CASE EVENT DATE: 20200528
